FAERS Safety Report 6958164-1 (Version None)
Quarter: 2010Q3

REPORT INFORMATION
  Report Type: 
  Country: None (occurrence: None)
  Receive Date: 20100831
  Receipt Date: 20100819
  Transmission Date: 20110219
  Serious: Yes (Hospitalization, Other)
  Sender: FDA-Public Use
  Company Number: JP-PFIZER INC-2010089949

PATIENT
  Age: 72 Year
  Sex: Female
  Weight: 41 kg

DRUGS (4)
  1. SUNITINIB MALATE [Suspect]
     Indication: GASTROINTESTINAL STROMAL TUMOUR
     Dosage: 50 MG, 1X/DAY
     Route: 048
     Dates: start: 20090818, end: 20090901
  2. ADALAT CC [Concomitant]
     Dosage: 40 MG, 1X/DAY
     Route: 048
     Dates: start: 20090826
  3. NORVASC [Concomitant]
     Dosage: 5 MG, 1X/DAY
     Route: 048
     Dates: end: 20090825
  4. MAGNESIUM OXIDE [Concomitant]
     Dosage: 440 MG, 3X/DAY
     Route: 048

REACTIONS (3)
  - GINGIVITIS [None]
  - PROTEIN URINE PRESENT [None]
  - WHITE BLOOD CELL COUNT DECREASED [None]
